FAERS Safety Report 5545821-7 (Version None)
Quarter: 2007Q4

REPORT INFORMATION
  Report Type: 
  Country: None (occurrence: None)
  Receive Date: 20071211
  Receipt Date: 20070830
  Transmission Date: 20080405
  Serious: No
  Sender: FDA-Public Use
  Company Number: US-ASTRAZENECA-2007UW20644

PATIENT
  Age: 60 Year
  Sex: Female
  Weight: 68 kg

DRUGS (8)
  1. SYMBICORT [Suspect]
     Indication: ASTHMA
     Dosage: 80/4.5 UG
     Route: 055
     Dates: start: 20070725, end: 20070725
  2. SYMBICORT [Suspect]
     Dosage: 80/4.5 UG
     Route: 055
     Dates: start: 20070829
  3. FOSAMAX [Concomitant]
     Route: 048
  4. ZANTAC [Concomitant]
     Route: 048
  5. HYPOTEARS DDPF [Concomitant]
  6. VITAMIN CAP [Concomitant]
  7. STOOL SOFTENER [Concomitant]
  8. FISH OIL [Concomitant]

REACTIONS (1)
  - PRURITUS GENERALISED [None]
